FAERS Safety Report 14306270 (Version 2)
Quarter: 2018Q1

REPORT INFORMATION
  Report Type: Report from Study
  Country: None (occurrence: US)
  Receive Date: 20171219
  Receipt Date: 20180227
  Transmission Date: 20180509
  Serious: Yes (Other)
  Sender: FDA-Public Use
  Company Number: US-ABBVIE-17K-163-2084421-00

PATIENT
  Sex: Female

DRUGS (5)
  1. HUMIRA [Suspect]
     Active Substance: ADALIMUMAB
     Route: 058
     Dates: start: 20170906, end: 2017
  2. HUMIRA [Suspect]
     Active Substance: ADALIMUMAB
     Dosage: DAY 8
     Route: 058
     Dates: start: 20170824, end: 20170824
  3. HUMIRA [Suspect]
     Active Substance: ADALIMUMAB
     Route: 058
  4. HUMIRA [Suspect]
     Active Substance: ADALIMUMAB
     Route: 058
     Dates: start: 201711, end: 201711
  5. HUMIRA [Suspect]
     Active Substance: ADALIMUMAB
     Indication: PSORIASIS
     Dosage: DAY 1
     Route: 058
     Dates: start: 20170817, end: 20170817

REACTIONS (18)
  - Foot deformity [Unknown]
  - Scar [Unknown]
  - Formication [Unknown]
  - Anger [Unknown]
  - Psoriasis [Recovering/Resolving]
  - Headache [Recovered/Resolved]
  - Chest discomfort [Unknown]
  - Skin irritation [Not Recovered/Not Resolved]
  - Drug effect decreased [Unknown]
  - Emotional distress [Unknown]
  - Frustration tolerance decreased [Unknown]
  - Impaired quality of life [Unknown]
  - Skin plaque [Unknown]
  - Hypoaesthesia [Unknown]
  - Pruritus [Unknown]
  - Paraesthesia [Unknown]
  - General physical condition abnormal [Unknown]
  - Panic reaction [Unknown]

NARRATIVE: CASE EVENT DATE: 2017
